FAERS Safety Report 5419275-5 (Version None)
Quarter: 2007Q3

REPORT INFORMATION
  Report Type: 
  Country: None (occurrence: None)
  Receive Date: 20070820
  Receipt Date: 20070817
  Transmission Date: 20080115
  Serious: Yes (Hospitalization, Disabling)
  Sender: FDA-Public Use
  Company Number: PHNU2007DE00756

PATIENT
  Age: 57 Year
  Sex: Female
  Weight: 59 kg

DRUGS (2)
  1. LAMISIL [Suspect]
     Indication: ONYCHOMYCOSIS
     Dosage: 1 DF, BID
     Route: 048
     Dates: start: 20050712, end: 20050719
  2. LAMISIL [Suspect]
     Dosage: 1 DF, QD
     Route: 048
     Dates: start: 20050720, end: 20051124

REACTIONS (4)
  - DRUG INEFFECTIVE [None]
  - HEPATIC LESION [None]
  - INTESTINAL OPERATION [None]
  - NEUROENDOCRINE CARCINOMA [None]
